FAERS Safety Report 9587947 (Version 5)
Quarter: 2014Q1

REPORT INFORMATION
  Report Type: Report from Study
  Country: DE (occurrence: DE)
  Receive Date: 20131003
  Receipt Date: 20140115
  Transmission Date: 20141002
  Serious: Yes (Hospitalization, Other)
  Sender: FDA-Public Use
  Company Number: DE-TEVA-435867USA

PATIENT
  Sex: Female
  Weight: 104 kg

DRUGS (6)
  1. BENDAMUSTINE [Suspect]
     Indication: PRODUCT USED FOR UNKNOWN INDICATION
     Route: 042
     Dates: start: 20130618, end: 20130903
  2. PEGFILGRASTIM [Suspect]
     Indication: PRODUCT USED FOR UNKNOWN INDICATION
     Route: 058
     Dates: start: 20130808, end: 20130905
  3. LENALIDOMIDE [Suspect]
     Indication: PRODUCT USED FOR UNKNOWN INDICATION
     Dosage: UID/QD
     Route: 048
     Dates: start: 20130618, end: 20130625
  4. LENALIDOMIDE [Suspect]
     Dosage: UID/QD
     Route: 048
     Dates: start: 20130806, end: 20130818
  5. LENALIDOMIDE [Suspect]
     Dosage: UID/QD
     Route: 048
     Dates: start: 20130903, end: 20130910
  6. DEXAMETHASON [Suspect]
     Indication: PRODUCT USED FOR UNKNOWN INDICATION
     Dosage: UNKNOWN/D
     Route: 048
     Dates: start: 20130618, end: 20130917

REACTIONS (4)
  - Pancytopenia [Recovered/Resolved]
  - Thrombocytopenia [Recovered/Resolved]
  - Neutropenia [Recovered/Resolved]
  - Leukopenia [Recovered/Resolved]
